FAERS Safety Report 9964260 (Version 2)
Quarter: 2014Q1

REPORT INFORMATION
  Report Type: Spontaneous
  Country: IT (occurrence: IT)
  Receive Date: 20140305
  Receipt Date: 20140328
  Transmission Date: 20141002
  Serious: Yes (Other)
  Sender: FDA-Public Use
  Company Number: IT-BRISTOL-MYERS SQUIBB COMPANY-20312575

PATIENT
  Age: 79 Year
  Sex: Female
  Weight: 53 kg

DRUGS (7)
  1. ORENCIA FOR INJ [Suspect]
     Indication: RHEUMATOID ARTHRITIS
     Dosage: BOOSTER DOSES:04
     Route: 042
     Dates: start: 20130911, end: 20140127
  2. OLMESARTAN MEDOXOMIL [Concomitant]
     Dosage: TRADE NAME: OLPREZIDE
     Route: 048
     Dates: start: 20130101, end: 20130127
  3. MEDROL [Concomitant]
     Dosage: 4MG TABS
     Route: 048
     Dates: start: 20130101, end: 20130127
  4. NEORAL [Concomitant]
     Dosage: TRADE NAME: SANDIMMUN NEORAL
     Route: 048
     Dates: start: 20130101, end: 20130127
  5. LASIX [Concomitant]
     Dosage: 25MG TABS
     Route: 048
     Dates: start: 20130101, end: 20130127
  6. LUCEN [Concomitant]
     Route: 048
     Dates: start: 20130101, end: 20130127
  7. TENORMIN [Concomitant]
     Route: 048
     Dates: start: 20130101, end: 20130127

REACTIONS (1)
  - Cerebrovascular accident [Not Recovered/Not Resolved]
